FAERS Safety Report 8101574-X (Version None)
Quarter: 2012Q1

REPORT INFORMATION
  Report Type: 
  Country: None (occurrence: None)
  Receive Date: 20120129
  Receipt Date: 20110919
  Transmission Date: 20120608
  Serious: No
  Sender: FDA-Public Use
  Company Number: US-ABBOTT-11P-163-0855938-00

PATIENT
  Age: 60 Year
  Sex: Male

DRUGS (6)
  1. ACETAMINOPHEN [Concomitant]
     Indication: PAIN
  2. POTASSIUM [Concomitant]
     Indication: BLOOD POTASSIUM DECREASED
  3. HUMIRA [Suspect]
     Indication: PSORIASIS
     Dates: start: 20080101
  4. DIURETIC [Concomitant]
     Indication: HYPERTENSION
  5. GLUCOVANCE [Concomitant]
     Indication: TYPE 2 DIABETES MELLITUS
  6. METHOTREXATE [Suspect]
     Indication: PRODUCT USED FOR UNKNOWN INDICATION
     Dosage: TAKES SAME DAY AS HIS DOSE OF HUMIRA

REACTIONS (2)
  - ABDOMINAL DISCOMFORT [None]
  - ILL-DEFINED DISORDER [None]
